FAERS Safety Report 21130770 (Version 1)
Quarter: 2022Q3

REPORT INFORMATION
  Report Type: Spontaneous
  Country: IN (occurrence: IN)
  Receive Date: 20220726
  Receipt Date: 20220726
  Transmission Date: 20221026
  Serious: Yes (Hospitalization)
  Sender: FDA-Public Use
  Company Number: IN-ALK-ABELLO A/S-2022AA002416

PATIENT

DRUGS (1)
  1. CIPROFLOXACIN [Suspect]
     Active Substance: CIPROFLOXACIN
     Indication: Preoperative care
     Dosage: 0.3 PERCENT, FOUR TIMES DAILY FOR 5 CONSECUTIVE DAYS PREOPERATIVELY

REACTIONS (1)
  - Ocular toxicity [Recovered/Resolved]
